FAERS Safety Report 5499442-5 (Version None)
Quarter: 2007Q4

REPORT INFORMATION
  Report Type: 
  Country: None (occurrence: None)
  Receive Date: 20071026
  Receipt Date: 20070927
  Transmission Date: 20080405
  Serious: Yes (Death)
  Sender: FDA-Public Use
  Company Number: US-ASTRAZENECA-2007UW18706

PATIENT
  Age: 58 Year
  Sex: Male
  Weight: 84.1 kg

DRUGS (4)
  1. SEROQUEL [Suspect]
     Indication: DEPRESSION
     Route: 048
     Dates: start: 20030101
  2. COCAINE [Suspect]
  3. OXYCODONE HCL [Suspect]
  4. MIRTAZAPINE [Suspect]

REACTIONS (2)
  - DIABETES MELLITUS [None]
  - DRUG TOXICITY [None]
